FAERS Safety Report 17935910 (Version 5)
Quarter: 2020Q3

REPORT INFORMATION
  Report Type: Spontaneous
  Country: PL (occurrence: PL)
  Receive Date: 20200624
  Receipt Date: 20200710
  Transmission Date: 20201103
  Serious: Yes (Other)
  Sender: FDA-Public Use
  Company Number: PL-PFIZER INC-2020239018

PATIENT
  Age: 70 Year
  Sex: Female

DRUGS (20)
  1. FLUOROURACIL. [Suspect]
     Active Substance: FLUOROURACIL
     Dosage: UNK
     Route: 042
     Dates: start: 20151005, end: 201510
  2. CYCLOPHOSPHAMIDE. [Suspect]
     Active Substance: CYCLOPHOSPHAMIDE
     Dosage: UNK, CYCLIC
     Route: 042
     Dates: start: 20151026, end: 2015
  3. CYCLOPHOSPHAMIDE. [Suspect]
     Active Substance: CYCLOPHOSPHAMIDE
     Dosage: UNK, CYCLIC
     Route: 042
     Dates: start: 20151124, end: 201512
  4. DOXORUBICIN HCL [Suspect]
     Active Substance: DOXORUBICIN HYDROCHLORIDE
     Dosage: UNK, CYCLIC
     Route: 042
     Dates: start: 20151005, end: 201510
  5. FLUOROURACIL. [Suspect]
     Active Substance: FLUOROURACIL
     Dosage: UNK
     Route: 042
     Dates: start: 20151124, end: 201512
  6. CYCLOPHOSPHAMIDE. [Suspect]
     Active Substance: CYCLOPHOSPHAMIDE
     Indication: BREAST CANCER FEMALE
     Dosage: UNK, CYCLIC (4 CYCLES: DOXORUBICIN + CYCLOPHOSPHAMIDE)
     Route: 042
     Dates: start: 201508, end: 2015
  7. PACLITAXEL. [Suspect]
     Active Substance: PACLITAXEL
     Indication: BREAST CANCER FEMALE
     Dosage: UNK, CYCLIC (12 CYCLES OF PACLITAXEL)
     Route: 042
     Dates: start: 201508, end: 2015
  8. FLUOROURACIL. [Suspect]
     Active Substance: FLUOROURACIL
     Dosage: UNK
     Route: 042
     Dates: start: 20150914, end: 2015
  9. PACLITAXEL. [Suspect]
     Active Substance: PACLITAXEL
     Dosage: UNK, CYCLIC
     Route: 042
     Dates: start: 20151124
  10. FLUOROURACIL. [Suspect]
     Active Substance: FLUOROURACIL
     Indication: BREAST CANCER FEMALE
     Dosage: UNK
     Route: 042
     Dates: start: 201508, end: 2015
  11. FLUOROURACIL. [Suspect]
     Active Substance: FLUOROURACIL
     Dosage: UNK
     Route: 042
     Dates: start: 20151026, end: 2015
  12. PACLITAXEL. [Suspect]
     Active Substance: PACLITAXEL
     Dosage: UNK, CYCLIC
     Route: 042
     Dates: start: 20150914, end: 2015
  13. CYCLOPHOSPHAMIDE. [Suspect]
     Active Substance: CYCLOPHOSPHAMIDE
     Dosage: UNK, CYCLIC
     Route: 042
     Dates: start: 20151005, end: 201510
  14. DOXORUBICIN HCL [Suspect]
     Active Substance: DOXORUBICIN HYDROCHLORIDE
     Indication: BREAST CANCER FEMALE
     Dosage: UNK, CYCLIC (4 CYCLES: DOXORUBICIN + CYCLOPHOSPHAMIDE)
     Route: 042
     Dates: start: 201508, end: 2015
  15. DOXORUBICIN HCL [Suspect]
     Active Substance: DOXORUBICIN HYDROCHLORIDE
     Dosage: UNK, CYCLIC
     Route: 042
     Dates: start: 20151124, end: 201512
  16. PACLITAXEL. [Suspect]
     Active Substance: PACLITAXEL
     Dosage: UNK, CYCLIC
     Route: 042
     Dates: start: 20151005, end: 201510
  17. CYCLOPHOSPHAMIDE. [Suspect]
     Active Substance: CYCLOPHOSPHAMIDE
     Dosage: UNK, CYCLIC
     Route: 042
     Dates: start: 20150914, end: 2015
  18. PACLITAXEL. [Suspect]
     Active Substance: PACLITAXEL
     Dosage: UNK, CYCLIC
     Route: 042
     Dates: start: 20151026, end: 2015
  19. DOXORUBICIN HCL [Suspect]
     Active Substance: DOXORUBICIN HYDROCHLORIDE
     Dosage: UNK, CYCLIC
     Route: 042
     Dates: start: 20150914, end: 2015
  20. DOXORUBICIN HCL [Suspect]
     Active Substance: DOXORUBICIN HYDROCHLORIDE
     Dosage: UNK, CYCLIC
     Route: 042
     Dates: start: 20151026, end: 2015

REACTIONS (3)
  - Atrial fibrillation [Recovered/Resolved]
  - Neutropenia [Recovered/Resolved]
  - Anaemia [Recovered/Resolved]

NARRATIVE: CASE EVENT DATE: 2015
